FAERS Safety Report 23597965 (Version 1)
Quarter: 2024Q1

REPORT INFORMATION
  Report Type: Spontaneous
  Country: ES (occurrence: ES)
  Receive Date: 20240305
  Receipt Date: 20240305
  Transmission Date: 20240410
  Serious: Yes (Other)
  Sender: FDA-Public Use
  Company Number: None

PATIENT
  Age: 57 Year
  Sex: Male
  Weight: 90 kg

DRUGS (2)
  1. HYDROCORTISONE [Interacting]
     Active Substance: HYDROCORTISONE
     Indication: Bronchospasm
     Route: 042
     Dates: start: 20240206, end: 20240206
  2. DEXAMETHASONE [Interacting]
     Active Substance: DEXAMETHASONE
     Indication: Bronchospasm
     Route: 048
     Dates: start: 20240206, end: 20240216

REACTIONS (1)
  - Hyperglycaemia [Recovered/Resolved]

NARRATIVE: CASE EVENT DATE: 20240206
